FAERS Safety Report 7218648-8 (Version None)
Quarter: 2011Q1

REPORT INFORMATION
  Report Type: 
  Country: None (occurrence: None)
  Receive Date: 20110110
  Receipt Date: 20110106
  Transmission Date: 20110831
  Serious: Yes (Disabling, Other)
  Sender: FDA-Public Use
  Company Number: US-ABBOTT-11P-163-0695592-00

PATIENT
  Sex: Male
  Weight: 70.37 kg

DRUGS (2)
  1. LISINOPRIL [Concomitant]
     Indication: HYPERTENSION
  2. HUMIRA [Suspect]
     Indication: RHEUMATOID ARTHRITIS
     Dates: start: 20100201, end: 20100601

REACTIONS (5)
  - PRURITUS [None]
  - URTICARIA [None]
  - LIP SWELLING [None]
  - SWOLLEN TONGUE [None]
  - RASH [None]
